FAERS Safety Report 24342793 (Version 1)
Quarter: 2024Q3

REPORT INFORMATION
  Report Type: Spontaneous
  Country: IT (occurrence: IT)
  Receive Date: 20240920
  Receipt Date: 20240920
  Transmission Date: 20241016
  Serious: Yes (Other)
  Sender: DR REDDYS
  Company Number: IT-RDY-LIT/ITA/24/0005039

PATIENT
  Age: 32 Year
  Sex: Male

DRUGS (5)
  1. CINACALCET HYDROCHLORIDE [Suspect]
     Active Substance: CINACALCET HYDROCHLORIDE
     Indication: Off label use
     Dosage: AT A DOSAGE OF 30 MG DAILY TREATMENT WAS INITIATED AND INCREASED GRADUALLY TO 120 MG DAILY
  2. CINACALCET HYDROCHLORIDE [Suspect]
     Active Substance: CINACALCET HYDROCHLORIDE
     Indication: Hyperparathyroidism tertiary
     Dosage: AT A DOSAGE OF 30 MG DAILY TREATMENT WAS INITIATED AND INCREASED GRADUALLY TO 120 MG DAILY
  3. ETELCALCETIDE [Suspect]
     Active Substance: ETELCALCETIDE
     Indication: Hyperparathyroidism tertiary
     Dosage: 5 MILLIGRAM, 3 TIMES/WK
  4. ETELCALCETIDE [Suspect]
     Active Substance: ETELCALCETIDE
     Indication: Off label use
     Dosage: 7.5 MILLIGRAM, 3 TIMES/WK
  5. VITAMIN D [Concomitant]
     Active Substance: VITAMIN D NOS
     Indication: Product used for unknown indication

REACTIONS (9)
  - Myelofibrosis [Recovering/Resolving]
  - Parathyroid gland enlargement [Unknown]
  - Pyrexia [Unknown]
  - Drug ineffective [Unknown]
  - Disease progression [Unknown]
  - Off label use [Unknown]
  - Asthenia [Unknown]
  - Hypocalcaemia [Unknown]
  - Treatment noncompliance [Unknown]
